FAERS Safety Report 12491325 (Version 1)
Quarter: 2016Q2

REPORT INFORMATION
  Report Type: Spontaneous
  Country: IT (occurrence: IT)
  Receive Date: 20160623
  Receipt Date: 20160623
  Transmission Date: 20160815
  Serious: Yes (Life-Threatening, Other)
  Sender: FDA-Public Use
  Company Number: IT-ACCORD-041656

PATIENT
  Age: 18 Day
  Sex: Male

DRUGS (7)
  1. VINCRISTINE [Suspect]
     Active Substance: VINCRISTINE
     Indication: GLIOBLASTOMA MULTIFORME
  2. ETOPOSIDE. [Suspect]
     Active Substance: ETOPOSIDE
     Indication: GLIOBLASTOMA MULTIFORME
     Dosage: ALSO RECEIVED 50 MG/KG DOSE
  3. MELPHALAN [Suspect]
     Active Substance: MELPHALAN
     Indication: GLIOBLASTOMA MULTIFORME
  4. CARBOPLATIN. [Suspect]
     Active Substance: CARBOPLATIN
     Indication: GLIOBLASTOMA MULTIFORME
     Dosage: ALSO RECEIVED AT 50 MG/KG DOSE
  5. CYCLOPHOSPHAMIDE/CYCLOPHOSPHAMIDE MONOHYDRATE [Suspect]
     Active Substance: CYCLOPHOSPHAMIDE
     Indication: GLIOBLASTOMA MULTIFORME
  6. METHOTREXATE [Suspect]
     Active Substance: METHOTREXATE
     Indication: GLIOBLASTOMA MULTIFORME
  7. THIOTEPA. [Suspect]
     Active Substance: THIOTEPA
     Indication: GLIOBLASTOMA MULTIFORME

REACTIONS (5)
  - Anaemia [Unknown]
  - Transaminases increased [Unknown]
  - Off label use [Unknown]
  - Thrombocytopenia [Unknown]
  - Juvenile melanoma benign [Unknown]
